FAERS Safety Report 4833687-X (Version None)
Quarter: 2005Q4

REPORT INFORMATION
  Report Type: 
  Country: None (occurrence: None)
  Receive Date: 20051114
  Receipt Date: 20051101
  Transmission Date: 20060501
  Serious: Yes (Hospitalization)
  Sender: FDA-Public Use
  Company Number: US_0509122201

PATIENT
  Age: 55 Year
  Sex: Female

DRUGS (3)
  1. SYMBYAX [Suspect]
     Dates: start: 20040205, end: 20040229
  2. PROZAC [Concomitant]
  3. LIPITOR [Concomitant]

REACTIONS (14)
  - BLOOD CHOLESTEROL INCREASED [None]
  - BLOOD POTASSIUM INCREASED [None]
  - BLOOD SODIUM DECREASED [None]
  - DECREASED APPETITE [None]
  - DEHYDRATION [None]
  - DIABETES MELLITUS [None]
  - DIABETIC HYPEROSMOLAR COMA [None]
  - DIABETIC KETOACIDOSIS [None]
  - DRUG INTOLERANCE [None]
  - ELECTROLYTE IMBALANCE [None]
  - GLYCOSYLATED HAEMOGLOBIN INCREASED [None]
  - LOW DENSITY LIPOPROTEIN INCREASED [None]
  - VISION BLURRED [None]
  - VOMITING [None]
